FAERS Safety Report 6666219-4 (Version None)
Quarter: 2010Q2

REPORT INFORMATION
  Report Type: 
  Country: None (occurrence: None)
  Receive Date: 20100402
  Receipt Date: 20100323
  Transmission Date: 20101027
  Serious: Yes (Death)
  Sender: FDA-Public Use
  Company Number: GB-WATSON-2010-04003

PATIENT

DRUGS (2)
  1. ALBUTEROL SULFATE (WATSON LABORATORIES) [Suspect]
     Indication: ASTHMA
     Dosage: 2 DF, TID
     Route: 055
  2. SERETIDE                           /01420901/ [Suspect]
     Indication: ASTHMA
     Dosage: 2 DF, BID
     Route: 055

REACTIONS (3)
  - ASTHMA [None]
  - DRUG INEFFECTIVE [None]
  - OVERDOSE [None]
